FAERS Safety Report 23184756 (Version 2)
Quarter: 2023Q4

REPORT INFORMATION
  Report Type: Spontaneous
  Country: US (occurrence: US)
  Receive Date: 20231115
  Receipt Date: 20231115
  Transmission Date: 20240110
  Serious: No
  Sender: FDA-Public Use
  Company Number: US-AMGEN-USASP2023203195

PATIENT
  Sex: Male

DRUGS (1)
  1. AMJEVITA [Suspect]
     Active Substance: ADALIMUMAB-ATTO
     Indication: Psoriasis
     Dosage: 40 MILLIGRAM// 0.8 ML, FREQUENCY: EVERY 10 DAYS
     Route: 058
     Dates: start: 202303

REACTIONS (3)
  - Drug dose omission by device [Unknown]
  - Off label use [Unknown]
  - Device difficult to use [Unknown]
